FAERS Safety Report 11952953 (Version 1)
Quarter: 2016Q1

REPORT INFORMATION
  Report Type: Spontaneous
  Country: US (occurrence: US)
  Receive Date: 20160126
  Receipt Date: 20160126
  Transmission Date: 20160526
  Serious: No
  Sender: FDA-Public Use
  Company Number: US-BAUSCH-BL-2015-020844

PATIENT
  Age: 46 Year
  Sex: Male
  Weight: 79.45 kg

DRUGS (2)
  1. ALAWAY [Suspect]
     Active Substance: KETOTIFEN FUMARATE
     Indication: MULTIPLE ALLERGIES
     Dosage: INSTILLED THE DROPS IN EACH EYE
     Route: 047
     Dates: start: 20150901, end: 20150902
  2. ALAWAY [Suspect]
     Active Substance: KETOTIFEN FUMARATE
     Dosage: INSTILLED THE DROPS IN EACH EYE
     Route: 047
     Dates: start: 20150902

REACTIONS (1)
  - Vision blurred [Not Recovered/Not Resolved]

NARRATIVE: CASE EVENT DATE: 20150902
